FAERS Safety Report 9790178 (Version 1)
Quarter: 2013Q4

REPORT INFORMATION
  Report Type: Report from Study
  Country: US (occurrence: US)
  Receive Date: 20131231
  Receipt Date: 20131231
  Transmission Date: 20140711
  Serious: Yes (Other)
  Sender: FDA-Public Use
  Company Number: US-PURDUE-USA-2013-0109859

PATIENT
  Age: 54 Year
  Sex: Female

DRUGS (2)
  1. OXY CR TAB [Suspect]
     Indication: RENAL CANCER
     Dosage: UNK
     Route: 048
     Dates: start: 201210
  2. OXY CR TAB [Suspect]
     Indication: SYSTEMIC LUPUS ERYTHEMATOSUS
     Dosage: 30 MG, TID
     Route: 048
     Dates: start: 20131207

REACTIONS (1)
  - Bladder cancer [Not Recovered/Not Resolved]
